FAERS Safety Report 5632288-3 (Version None)
Quarter: 2008Q1

REPORT INFORMATION
  Report Type: 
  Country: None (occurrence: None)
  Receive Date: 20080212
  Receipt Date: 20080130
  Transmission Date: 20080703
  Serious: Yes (Hospitalization)
  Sender: FDA-Public Use
  Company Number: 2008S1001684

PATIENT
  Age: 76 Year
  Sex: Female

DRUGS (5)
  1. DILTIAZEM [Suspect]
     Indication: DRUG USE FOR UNKNOWN INDICATION
  2. PROTELOS /01556702/ [Suspect]
     Dates: start: 20070205, end: 20070313
  3. ADCAL-D3 [Concomitant]
  4. ACETAMINOPHEN [Concomitant]
  5. RISEDRONATE SODIUM [Concomitant]

REACTIONS (1)
  - EXFOLIATIVE RASH [None]
